FAERS Safety Report 8551852-5 (Version None)
Quarter: 2012Q3

REPORT INFORMATION
  Report Type: 
  Country: None (occurrence: None)
  Receive Date: 20120730
  Receipt Date: 20120720
  Transmission Date: 20120928
  Serious: Yes (Hospitalization)
  Sender: FDA-Public Use
  Company Number: US-ASTRAZENECA-2011SE38249

PATIENT
  Age: 48 Year
  Sex: Female

DRUGS (1)
  1. NEXIUM [Suspect]
     Dosage: TWICE A DAY
     Route: 048

REACTIONS (8)
  - DRUG DOSE OMISSION [None]
  - BLOOD COUNT ABNORMAL [None]
  - DRUG INEFFECTIVE [None]
  - OESOPHAGEAL ULCER HAEMORRHAGE [None]
  - GASTROOESOPHAGEAL REFLUX DISEASE [None]
  - HAEMORRHAGE [None]
  - HAEMATEMESIS [None]
  - SYSTEMIC LUPUS ERYTHEMATOSUS [None]
